FAERS Safety Report 23225459 (Version 1)
Quarter: 2023Q4

REPORT INFORMATION
  Report Type: Spontaneous
  Country: ES (occurrence: ES)
  Receive Date: 20231124
  Receipt Date: 20231124
  Transmission Date: 20240110
  Serious: Yes (Other)
  Sender: FDA-Public Use
  Company Number: None

PATIENT
  Age: 82 Year
  Sex: Female

DRUGS (2)
  1. ENALAPRIL [Interacting]
     Active Substance: ENALAPRIL
     Indication: Cardiac failure congestive
     Dosage: 0.5-0-0.5 SUSPENDED 07.08.23 AND THEN MODIFIED 0-0-5 ON 08.19.23  ,  ENALAPRIL (2142A)
     Route: 065
     Dates: start: 2018, end: 20230807
  2. ALDACTONE [Interacting]
     Active Substance: SPIRONOLACTONE
     Indication: Cardiac failure congestive
     Dosage: 25 MILLIGRAM DAILY; 1-0-0
     Dates: start: 2018, end: 20230807

REACTIONS (4)
  - Hyperkalaemia [Recovered/Resolved]
  - Condition aggravated [Recovered/Resolved]
  - Acute kidney injury [Recovered/Resolved]
  - Drug interaction [Unknown]

NARRATIVE: CASE EVENT DATE: 20230803
